FAERS Safety Report 8941891 (Version 1)
Quarter: 2012Q4

REPORT INFORMATION
  Report Type: 
  Country: BR (occurrence: BR)
  Receive Date: 20121203
  Receipt Date: 20121203
  Transmission Date: 20130627
  Serious: Yes (Other)
  Sender: FDA-Public Use
  Company Number: BR-PFIZER INC-2012299179

PATIENT
  Age: 60 Year
  Sex: Male
  Weight: 78 kg

DRUGS (5)
  1. CITALOR [Suspect]
     Indication: HEART DISORDER
     Dosage: 20 mg, 1x/day
     Route: 048
     Dates: start: 201207
  2. ALDACTONE [Suspect]
     Dosage: 25 mg, 1x/day
     Route: 048
     Dates: start: 201207
  3. CARVEDILOL [Concomitant]
     Indication: HEART DISORDER
     Dosage: 1 DF, 2x/day
  4. PRADAXA [Concomitant]
     Indication: ANTICOAGULANT THERAPY
     Dosage: 1 DF, 2x/day
     Dates: start: 201207
  5. SLOW-K [Concomitant]
     Dosage: 1 DF, 3x/day
     Dates: start: 201207

REACTIONS (3)
  - Aortic aneurysm [Unknown]
  - Arrhythmia [Unknown]
  - Movement disorder [Not Recovered/Not Resolved]
